FAERS Safety Report 5318405-3 (Version None)
Quarter: 2007Q2

REPORT INFORMATION
  Report Type: 
  Country: None (occurrence: None)
  Receive Date: 20070501
  Receipt Date: 20070419
  Transmission Date: 20071010
  Serious: Yes (Hospitalization, Disabling)
  Sender: FDA-Public Use
  Company Number: 155577ISR

PATIENT
  Age: 84 Year
  Sex: Male

DRUGS (2)
  1. PREDNISOLONE [Suspect]
     Dosage: (30 MG), ORAL
     Route: 048
     Dates: start: 20070313, end: 20070319
  2. LEVOFLOXACIN [Suspect]
     Indication: LOWER RESPIRATORY TRACT INFECTION
     Dosage: (500 MG), ORAL
     Route: 048
     Dates: start: 20070312, end: 20070318

REACTIONS (1)
  - TENDON RUPTURE [None]
